FAERS Safety Report 10005922 (Version 2)
Quarter: 2015Q2

REPORT INFORMATION
  Report Type: Spontaneous
  Country: IT (occurrence: IT)
  Receive Date: 20140313
  Receipt Date: 20150518
  Transmission Date: 20150821
  Serious: Yes (Death)
  Sender: FDA-Public Use
  Company Number: IT-BEH-2014041081

PATIENT
  Age: 67 Year
  Sex: Male

DRUGS (2)
  1. INTRAVENOUS HUMAN IMMUNOGLOBULIN [Suspect]
     Active Substance: HUMAN IMMUNOGLOBULIN G
     Indication: HASHIMOTO^S ENCEPHALOPATHY
     Route: 042
  2. METHYLPREDNISOLONE. [Concomitant]
     Active Substance: METHYLPREDNISOLONE
     Indication: HASHIMOTO^S ENCEPHALOPATHY

REACTIONS (3)
  - Neurological decompensation [Fatal]
  - Hashimoto^s encephalopathy [Fatal]
  - Drug ineffective for unapproved indication [Fatal]
